FAERS Safety Report 18494236 (Version 1)
Quarter: 2020Q4

REPORT INFORMATION
  Report Type: Report from Study
  Country: FR (occurrence: FR)
  Receive Date: 20201112
  Receipt Date: 20201112
  Transmission Date: 20210114
  Serious: Yes (Hospitalization)
  Sender: FDA-Public Use
  Company Number: FR-SHIRE-FR202009027

PATIENT

DRUGS (22)
  1. TEDUGLUTIDE [Suspect]
     Active Substance: TEDUGLUTIDE
     Dosage: 2.8 MILLIGRAM (0.05 MG KG DAILY DOSE, 7 TED DOSES PER WEEK)
     Route: 065
     Dates: start: 20181126, end: 20190614
  2. VITAMIN D [COLECALCIFEROL] [Concomitant]
     Active Substance: CHOLECALCIFEROL
     Indication: VITAMIN D DEFICIENCY
     Dosage: 1 DOSAGE FORM, QD
     Route: 048
     Dates: start: 20200606
  3. CLINDAMYCIN. [Concomitant]
     Active Substance: CLINDAMYCIN
     Indication: PROPHYLAXIS
     Dosage: 300 MILLIGRAM, TID
     Route: 048
     Dates: start: 20200206, end: 20200209
  4. TEDUGLUTIDE [Suspect]
     Active Substance: TEDUGLUTIDE
     Indication: SHORT-BOWEL SYNDROME
     Dosage: 2.6 MILLIGRAM (0.05 MG KG DAILY DOSE, 7 TED DOSES PER WEEK)
     Route: 065
     Dates: start: 20180217, end: 20180607
  5. TEDUGLUTIDE [Suspect]
     Active Substance: TEDUGLUTIDE
     Indication: SHORT-BOWEL SYNDROME
     Dosage: 2.6 MILLIGRAM (0.05 MG KG DAILY DOSE, 7 TED DOSES PER WEEK)
     Route: 065
     Dates: start: 20180217, end: 20180607
  6. TEDUGLUTIDE [Suspect]
     Active Substance: TEDUGLUTIDE
     Dosage: 2.8 MILLIGRAM (0.05 MG KG DAILY DOSE, 7 TED DOSES PER WEEK)
     Route: 065
     Dates: start: 20181126, end: 20190614
  7. TEDUGLUTIDE [Suspect]
     Active Substance: TEDUGLUTIDE
     Dosage: 2.6 MILLIGRAM (0.05 MG KG DAILY DOSE, 7 TED DOSES PER WEEK)
     Route: 065
     Dates: start: 20190615, end: 20191001
  8. TEDUGLUTIDE [Suspect]
     Active Substance: TEDUGLUTIDE
     Indication: SHORT-BOWEL SYNDROME
     Dosage: 2.6 MILLIGRAM (0.05 MG KG DAILY DOSE, 7 TED DOSES PER WEEK)
     Route: 065
     Dates: start: 20180217, end: 20180607
  9. TEDUGLUTIDE [Suspect]
     Active Substance: TEDUGLUTIDE
     Dosage: 2.8 MILLIGRAM (0.05 MG KG DAILY DOSE, 7 TED DOSES PER WEEK)
     Route: 065
     Dates: start: 20181126, end: 20190614
  10. FOLIC ACID. [Concomitant]
     Active Substance: FOLIC ACID
     Indication: PREGNANCY
  11. VITAMINE A [Concomitant]
     Active Substance: RETINOL
     Indication: VITAMIN A DEFICIENCY
  12. TEDUGLUTIDE [Suspect]
     Active Substance: TEDUGLUTIDE
     Dosage: 2.9 MILLIGRAM (0.05 MG KG DAILY DOSE, 7 TED DOSES PER WEEK)
     Route: 065
     Dates: start: 20180608, end: 20181125
  13. TEDUGLUTIDE [Suspect]
     Active Substance: TEDUGLUTIDE
     Dosage: 2.6 MILLIGRAM (0.05 MG KG DAILY DOSE, 7 TED DOSES PER WEEK)
     Route: 065
     Dates: start: 20190615, end: 20191001
  14. VANCOMYCINE [VANCOMYCIN] [Concomitant]
     Active Substance: VANCOMYCIN
     Indication: LACTIC ACIDOSIS
  15. TEDUGLUTIDE [Suspect]
     Active Substance: TEDUGLUTIDE
     Dosage: 2.9 MILLIGRAM (0.05 MG KG DAILY DOSE, 7 TED DOSES PER WEEK)
     Route: 065
     Dates: start: 20180608, end: 20181125
  16. TEDUGLUTIDE [Suspect]
     Active Substance: TEDUGLUTIDE
     Dosage: 2.6 MILLIGRAM (0.05 MG KG DAILY DOSE, 7 TED DOSES PER WEEK)
     Route: 065
     Dates: start: 20190615, end: 20191001
  17. TEDUGLUTIDE [Suspect]
     Active Substance: TEDUGLUTIDE
     Dosage: 2.9 MILLIGRAM (0.05 MG KG DAILY DOSE, 7 TED DOSES PER WEEK)
     Route: 065
     Dates: start: 20180608, end: 20181125
  18. TEDUGLUTIDE [Suspect]
     Active Substance: TEDUGLUTIDE
     Dosage: 2.9 MILLIGRAM (0.05 MG KG DAILY DOSE, 7 TED DOSES PER WEEK)
     Route: 065
     Dates: start: 20180608, end: 20181125
  19. TEDUGLUTIDE [Suspect]
     Active Substance: TEDUGLUTIDE
     Dosage: 2.8 MILLIGRAM (0.05 MG KG DAILY DOSE, 7 TED DOSES PER WEEK)
     Route: 065
     Dates: start: 20181126, end: 20190614
  20. LEVOCARNIL [LEVOCARNITINE] [Concomitant]
     Active Substance: LEVOCARNITINE
     Indication: CARNITINE DEFICIENCY
     Dosage: 1 DOSAGE FORM, TID
     Route: 048
     Dates: start: 20200606
  21. TEDUGLUTIDE [Suspect]
     Active Substance: TEDUGLUTIDE
     Indication: SHORT-BOWEL SYNDROME
     Dosage: 2.6 MILLIGRAM (0.05 MG KG DAILY DOSE, 7 TED DOSES PER WEEK)
     Route: 065
     Dates: start: 20180217, end: 20180607
  22. TEDUGLUTIDE [Suspect]
     Active Substance: TEDUGLUTIDE
     Dosage: 2.6 MILLIGRAM (0.05 MG KG DAILY DOSE, 7 TED DOSES PER WEEK)
     Route: 065
     Dates: start: 20190615, end: 20191001

REACTIONS (2)
  - Nervous system disorder [Not Recovered/Not Resolved]
  - Vertigo [Not Recovered/Not Resolved]

NARRATIVE: CASE EVENT DATE: 201912
